FAERS Safety Report 4728579-0 (Version None)
Quarter: 2005Q3

REPORT INFORMATION
  Report Type: 
  Country: None (occurrence: None)
  Receive Date: 20050727
  Receipt Date: 20050713
  Transmission Date: 20060218
  Serious: Yes (Hospitalization)
  Sender: FDA-Public Use
  Company Number: 2005101453

PATIENT
  Age: 57 Year
  Sex: Female

DRUGS (3)
  1. UROBIOTIC CAPSULES (PHENAZOPYRIDINE HYDROCHLORIDE, SULFAMETHIZOLE, OXY [Suspect]
     Indication: CYSTITIS
  2. AMLODIPINE [Concomitant]
  3. CIMETIDINE [Concomitant]

REACTIONS (7)
  - BLOOD DISORDER [None]
  - CYANOSIS [None]
  - DYSPNOEA [None]
  - OXYGEN SATURATION DECREASED [None]
  - PCO2 DECREASED [None]
  - RESPIRATORY RATE INCREASED [None]
  - SINUS TACHYCARDIA [None]
